FAERS Safety Report 4644675-0 (Version None)
Quarter: 2005Q2

REPORT INFORMATION
  Report Type: 
  Country: None (occurrence: None)
  Receive Date: 20050425
  Receipt Date: 20050425
  Transmission Date: 20051028
  Serious: Yes (Hospitalization)
  Sender: FDA-Public Use
  Company Number: None

PATIENT
  Sex: Male
  Weight: 87.0906 kg

DRUGS (19)
  1. CLINDAMYCIN [Suspect]
     Indication: ORAL PAIN
     Dosage: 300 MG   BID   ORAL
     Route: 048
     Dates: start: 20050215, end: 20050217
  2. CATAPRES-TTS-3 [Concomitant]
  3. DILANTIN [Concomitant]
  4. RISPERIDONE [Concomitant]
  5. DOCUSATE SODIUM [Concomitant]
  6. ALLOPURINOL [Concomitant]
  7. BACLOFEN [Concomitant]
  8. HYDROCHLOROTHIAZIDE [Concomitant]
  9. LORATADINE [Concomitant]
  10. METOPROLOL [Concomitant]
  11. NORVASC [Concomitant]
  12. RANITIDINE [Concomitant]
  13. ASPIRIN [Concomitant]
  14. NEBS [Concomitant]
  15. TYLENOL (CAPLET) [Concomitant]
  16. BISACODYL [Concomitant]
  17. LORAZEPAM [Concomitant]
  18. MOM [Concomitant]
  19. SIMETHICONE [Concomitant]

REACTIONS (4)
  - RASH ERYTHEMATOUS [None]
  - RASH GENERALISED [None]
  - RED MAN SYNDROME [None]
  - URINARY TRACT INFECTION [None]
